FAERS Safety Report 7730024-8 (Version None)
Quarter: 2011Q3

REPORT INFORMATION
  Report Type: 
  Country: None (occurrence: None)
  Receive Date: 20110906
  Receipt Date: 20110824
  Transmission Date: 20111222
  Serious: Yes (Hospitalization, Other)
  Sender: FDA-Public Use
  Company Number: PHHY2011BR76249

PATIENT
  Age: 83 Year
  Sex: Female

DRUGS (12)
  1. ACETYLSALICYLIC ACID SRT [Concomitant]
     Dosage: 1 TABLET A DAY
  2. LANTUS [Concomitant]
     Dosage: 15 UNITS, 3 YEARS
  3. RASILEZ HCT [Suspect]
     Dosage: 1 DF, UNK
  4. ACTOS [Concomitant]
     Dosage: 1 TABLET A DAY
  5. LIPITOR [Concomitant]
     Dosage: 1 TABLET A DAY
  6. TRENTAL [Concomitant]
     Dosage: 1 TABLET AT NIGHT
     Dates: end: 20110801
  7. CALCIUM CARBONATE [Concomitant]
     Dosage: 1 DF, UNK
  8. THIOCTIC ACID [Concomitant]
     Dosage: 1 TABLET AT NIGHT
  9. LEXAPRO [Concomitant]
     Dosage: 1 TABLET AT NIGHT
  10. CARBAMAZEPINE [Concomitant]
     Dosage: 1 TABLET A DAY
  11. JANUMET [Concomitant]
     Dosage: 1 DF, UNK
  12. LYRICA [Concomitant]
     Dosage: 1 DF, BID

REACTIONS (6)
  - BLOOD POTASSIUM DECREASED [None]
  - AMNESIA [None]
  - DEMENTIA ALZHEIMER'S TYPE [None]
  - BLOOD SODIUM DECREASED [None]
  - PYELONEPHRITIS ACUTE [None]
  - WEIGHT DECREASED [None]
